FAERS Safety Report 9557828 (Version 1)
Quarter: 2013Q3

REPORT INFORMATION
  Report Type: Spontaneous
  Country: US (occurrence: US)
  Receive Date: 20130926
  Receipt Date: 20130926
  Transmission Date: 20140515
  Serious: Yes (Other)
  Sender: FDA-Public Use
  Company Number: US-SANOFI-AVENTIS-2013SA094269

PATIENT
  Age: 23 Year
  Sex: Female
  Weight: 69.9 kg

DRUGS (13)
  1. FABRAZYME [Suspect]
     Indication: FABRY^S DISEASE
     Route: 042
     Dates: start: 20101026
  2. ZITHROMAX [Concomitant]
  3. KEFLEX [Concomitant]
  4. ACETAMINOPHEN [Concomitant]
  5. DIPHENHYDRAMINE [Concomitant]
  6. HEPARIN [Concomitant]
  7. NORMAL SALINE [Concomitant]
  8. SODIUM CHLORIDE [Concomitant]
  9. EPINEPHRINE [Concomitant]
  10. IBUPROFEN [Concomitant]
  11. MULTIVITAMINS [Concomitant]
  12. IMPLANON [Concomitant]
  13. TUMS [Concomitant]

REACTIONS (3)
  - Uterine infection [Unknown]
  - Ear infection [Unknown]
  - Nasopharyngitis [Unknown]
